FAERS Safety Report 6881387-7 (Version None)
Quarter: 2010Q3

REPORT INFORMATION
  Report Type: 
  Country: None (occurrence: None)
  Receive Date: 20100728
  Receipt Date: 20100728
  Transmission Date: 20110219
  Serious: Yes (Hospitalization)
  Sender: FDA-Public Use
  Company Number: None

PATIENT
  Sex: Female
  Weight: 99.2 kg

DRUGS (3)
  1. TEMOZOLOMIDE [Suspect]
     Indication: GLIOBLASTOMA
     Dosage: 210 MG QD DAILY
     Dates: start: 20100504
  2. BACTRIM [Concomitant]
  3. ZOFRAN [Concomitant]

REACTIONS (6)
  - ASTHENIA [None]
  - DYSARTHRIA [None]
  - FATIGUE [None]
  - HYPOAESTHESIA [None]
  - MALIGNANT NEOPLASM PROGRESSION [None]
  - VIITH NERVE PARALYSIS [None]
